FAERS Safety Report 5945969-9 (Version None)
Quarter: 2008Q4

REPORT INFORMATION
  Report Type: 
  Country: None (occurrence: None)
  Receive Date: 20081106
  Receipt Date: 20081024
  Transmission Date: 20090506
  Serious: Yes (Hospitalization)
  Sender: FDA-Public Use
  Company Number: 1000001553

PATIENT
  Age: 28 Year
  Sex: Female

DRUGS (5)
  1. ESCITALOPRAM [Suspect]
     Dosage: 10 MG (10 MG, 1 IN 1 D)
     Dates: start: 20050216
  2. ZOLOFT (100 MILIGRAM) [Concomitant]
  3. STANGYL (25 MILLIGRAM) [Concomitant]
  4. XIMOVAN [Concomitant]
  5. REMERGIL [Concomitant]

REACTIONS (1)
  - BREAST PAIN [None]
